FAERS Safety Report 7462401-7 (Version None)
Quarter: 2011Q2

REPORT INFORMATION
  Report Type: 
  Country: None (occurrence: None)
  Receive Date: 20110506
  Receipt Date: 20110429
  Transmission Date: 20111010
  Serious: Yes (Other)
  Sender: FDA-Public Use
  Company Number: IT-MPIJNJ-2011-01723

PATIENT

DRUGS (1)
  1. VELCADE [Suspect]
     Indication: MULTIPLE MYELOMA
     Dosage: UNK MG, UNK
     Route: 065
     Dates: start: 20110301, end: 20110422

REACTIONS (3)
  - LIVER FUNCTION TEST ABNORMAL [None]
  - HAEMOLYSIS [None]
  - THROMBOCYTOPENIA [None]
